FAERS Safety Report 7754519-6 (Version None)
Quarter: 2011Q3

REPORT INFORMATION
  Report Type: 
  Country: None (occurrence: None)
  Receive Date: 20110915
  Receipt Date: 20110907
  Transmission Date: 20111222
  Serious: Yes (Hospitalization, Disabling, Other)
  Sender: FDA-Public Use
  Company Number: US-US-EMD SERONO, INC.-7032700

PATIENT
  Sex: Female

DRUGS (2)
  1. UNSPECIFIED MEDICATIONS [Concomitant]
  2. REBIF [Suspect]
     Indication: MULTIPLE SCLEROSIS
     Route: 058
     Dates: start: 20100127

REACTIONS (3)
  - CEREBROVASCULAR ACCIDENT [None]
  - MULTIPLE SCLEROSIS RELAPSE [None]
  - CONVULSION [None]
